FAERS Safety Report 23645887 (Version 2)
Quarter: 2024Q2

REPORT INFORMATION
  Report Type: Spontaneous
  Country: NL (occurrence: NL)
  Receive Date: 20240319
  Receipt Date: 20240405
  Transmission Date: 20240716
  Serious: Yes (Other)
  Sender: FDA-Public Use
  Company Number: NL-TEVA-VS-3169853

PATIENT
  Age: 50 Year
  Sex: Male

DRUGS (7)
  1. ITRACONAZOLE [Suspect]
     Active Substance: ITRACONAZOLE
     Indication: Fungal skin infection
     Route: 065
  2. ITRACONAZOLE [Suspect]
     Active Substance: ITRACONAZOLE
     Indication: Fungal skin infection
     Dosage: RECEIVED THREE TIMES DAILY
     Route: 065
  3. MYCOPHENOLATE MOFETIL [Suspect]
     Active Substance: MYCOPHENOLATE MOFETIL
     Indication: Immunosuppressant drug therapy
     Route: 065
  4. TACROLIMUS [Suspect]
     Active Substance: TACROLIMUS
     Indication: Immunosuppressant drug therapy
     Dosage: RECEIVED ON ALTERNATE DAYS
     Route: 065
  5. TACROLIMUS [Suspect]
     Active Substance: TACROLIMUS
     Indication: Immunosuppressant drug therapy
     Route: 065
  6. PREDNISOLONE [Suspect]
     Active Substance: PREDNISOLONE
     Indication: Immunosuppressant drug therapy
     Route: 065
  7. VORICONAZOLE [Suspect]
     Active Substance: VORICONAZOLE
     Indication: Fungal skin infection
     Dosage: RECEIVED FOR ONE MONTH
     Route: 048

REACTIONS (8)
  - Mycetoma mycotic [Recovered/Resolved]
  - Diarrhoea [Unknown]
  - Fungal skin infection [Recovered/Resolved]
  - Visual impairment [Unknown]
  - Drug interaction [Unknown]
  - Bone lesion [Recovered/Resolved]
  - Nausea [Unknown]
  - Dizziness [Unknown]
